FAERS Safety Report 7168499-8 (Version None)
Quarter: 2010Q4

REPORT INFORMATION
  Report Type: 
  Country: None (occurrence: None)
  Receive Date: 20101216
  Receipt Date: 20101210
  Transmission Date: 20110411
  Serious: Yes (Life-Threatening, Hospitalization)
  Sender: FDA-Public Use
  Company Number: GB-ELI_LILLY_AND_COMPANY-GB201012002629

PATIENT
  Sex: Male
  Weight: 87 kg

DRUGS (4)
  1. PEMETREXED [Suspect]
     Indication: NON-SMALL CELL LUNG CANCER METASTATIC
     Dosage: 500 MG/M2, UNKNOWN
     Route: 042
     Dates: start: 20101025, end: 20101206
  2. TAXOL [Suspect]
     Indication: NON-SMALL CELL LUNG CANCER METASTATIC
     Dosage: 175 MG/M2, UNKNOWN
     Route: 042
     Dates: start: 20101025, end: 20101206
  3. DEXAMETHASONE [Concomitant]
     Indication: NAUSEA
     Dosage: 4 MG, 2/D
     Route: 048
     Dates: start: 20101205
  4. PRILOSEC [Concomitant]
     Indication: DYSPEPSIA
     Dosage: 20 MG, DAILY (1/D)
     Route: 048

REACTIONS (1)
  - MYOCARDIAL INFARCTION [None]
